FAERS Safety Report 4851215-X (Version None)
Quarter: 2005Q4

REPORT INFORMATION
  Report Type: 
  Country: None (occurrence: None)
  Receive Date: 20051208
  Receipt Date: 20051116
  Transmission Date: 20060501
  Serious: Yes (Hospitalization)
  Sender: FDA-Public Use
  Company Number: US200511001397

PATIENT
  Age: 75 Year
  Sex: Female

DRUGS (3)
  1. HUMALOG [Suspect]
     Dosage: SEE IMAGE
     Route: 058
  2. HUMALOG MIX 75/25 [Suspect]
     Dosage: 50 U, EACH MORNING, SUBCUTANEOUS
     Route: 058
  3. HUMULIN N [Suspect]
     Dosage: 40 U, EACH MORNING, SUBCUTANEOUS
     Route: 058

REACTIONS (6)
  - BLOOD GLUCOSE DECREASED [None]
  - CHEST PAIN [None]
  - DYSPNOEA [None]
  - FATIGUE [None]
  - PHARMACEUTICAL PRODUCT COMPLAINT [None]
  - STRESS [None]
